FAERS Safety Report 11467377 (Version 1)
Quarter: 2015Q3

REPORT INFORMATION
  Report Type: Spontaneous
  Country: US (occurrence: None)
  Receive Date: 20150903
  Receipt Date: 20150903
  Transmission Date: 20151125
  Serious: Yes (Other)
  Sender: FDA-Public Use
  Company Number: None

PATIENT
  Age: 52 Year
  Sex: Female

DRUGS (2)
  1. DULOXETINE 30MG [Suspect]
     Active Substance: DULOXETINE
     Indication: PAIN
     Dosage: 2 CAPS QD ORAL
     Route: 048
  2. DULOXETINE 30MG [Suspect]
     Active Substance: DULOXETINE
     Indication: DEPRESSION
     Dosage: 2 CAPS QD ORAL
     Route: 048

REACTIONS (2)
  - No therapeutic response [None]
  - Condition aggravated [None]
